FAERS Safety Report 10207153 (Version 1)
Quarter: 2014Q2

REPORT INFORMATION
  Report Type: Spontaneous
  Country: US (occurrence: US)
  Receive Date: 20140530
  Receipt Date: 20140530
  Transmission Date: 20141212
  Serious: No
  Sender: FDA-Public Use
  Company Number: US-GLAXOSMITHKLINE-A1021155A

PATIENT
  Age: 81 Year
  Sex: Female

DRUGS (3)
  1. VENTOLIN [Suspect]
     Indication: ASTHMA
     Dosage: 2PUFF VARIABLE DOSE
     Route: 055
     Dates: end: 20130416
  2. BENICAR [Concomitant]
  3. PRILOSEC [Concomitant]

REACTIONS (1)
  - Dyspnoea [Recovering/Resolving]
